FAERS Safety Report 5563934-0 (Version None)
Quarter: 2007Q4

REPORT INFORMATION
  Report Type: 
  Country: None (occurrence: None)
  Receive Date: 20071217
  Receipt Date: 20071004
  Transmission Date: 20080405
  Serious: No
  Sender: FDA-Public Use
  Company Number: US-ASTRAZENECA-2007UW23182

PATIENT
  Age: 83 Year
  Sex: Female
  Weight: 54.4 kg

DRUGS (6)
  1. CRESTOR [Suspect]
     Indication: BLOOD CHOLESTEROL INCREASED
     Route: 048
     Dates: start: 20070601
  2. DIGOXIN [Concomitant]
  3. PLAVIX [Concomitant]
  4. METOPROLOL [Concomitant]
  5. NITROGLYCERIN [Concomitant]
  6. ASPIRIN [Concomitant]

REACTIONS (4)
  - FATIGUE [None]
  - MUSCULAR WEAKNESS [None]
  - PITYRIASIS ROSEA [None]
  - RASH [None]
